FAERS Safety Report 23971555 (Version 1)
Quarter: 2024Q2

REPORT INFORMATION
  Report Type: Spontaneous
  Country: SE (occurrence: SE)
  Receive Date: 20240613
  Receipt Date: 20240613
  Transmission Date: 20240716
  Serious: Yes (Life-Threatening, Other)
  Sender: FDA-Public Use
  Company Number: None

PATIENT
  Age: 34 Year
  Sex: Female
  Weight: 112 kg

DRUGS (5)
  1. IRON ISOMALTOSIDE 1000 [Suspect]
     Active Substance: IRON ISOMALTOSIDE 1000
     Indication: Iron deficiency anaemia
     Dates: start: 20240522, end: 20240522
  2. IRON ISOMALTOSIDE 1000 [Suspect]
     Active Substance: IRON ISOMALTOSIDE 1000
     Indication: Iron deficiency anaemia
     Dates: start: 20240522, end: 20240522
  3. IRON ISOMALTOSIDE 1000 [Suspect]
     Active Substance: IRON ISOMALTOSIDE 1000
     Indication: Iron deficiency anaemia
     Dates: start: 20240522, end: 20240522
  4. SUMATRIPTAN APOFRI [Concomitant]
     Dosage: 1 VB
  5. ESCITALOPRAM OXALATE [Concomitant]
     Active Substance: ESCITALOPRAM OXALATE

REACTIONS (7)
  - Blood pressure decreased [Recovering/Resolving]
  - Fishbane reaction [Recovering/Resolving]
  - Abdominal pain [Unknown]
  - Premature labour [Unknown]
  - Maternal exposure during pregnancy [Recovered/Resolved]
  - Caesarean section [Unknown]
  - Normal newborn [Recovered/Resolved]

NARRATIVE: CASE EVENT DATE: 20240501
